FAERS Safety Report 23136672 (Version 4)
Quarter: 2024Q4

REPORT INFORMATION
  Report Type: Report from Study
  Country: DE (occurrence: DE)
  Receive Date: 20231102
  Receipt Date: 20241111
  Transmission Date: 20250115
  Serious: Yes (Hospitalization, Other)
  Sender: ABBVIE
  Company Number: DE-ABBVIE-5468952

PATIENT
  Age: 60 Year
  Sex: Female
  Weight: 72 kg

DRUGS (3)
  1. SKYRIZI [Suspect]
     Active Substance: RISANKIZUMAB-RZAA
     Indication: Psoriasis
     Route: 058
     Dates: start: 20220201
  2. LEVOTHYROXINE SODIUM [Concomitant]
     Active Substance: LEVOTHYROXINE SODIUM
     Indication: Product used for unknown indication
     Route: 048
  3. FOSTER [Concomitant]
     Active Substance: BECLOMETHASONE\FORMOTEROL
     Indication: Product used for unknown indication
     Dosage: 1 STROKE? SPRAY

REACTIONS (11)
  - Uterine prolapse [Recovered/Resolved]
  - Musculoskeletal disorder [Unknown]
  - Cystocele [Unknown]
  - Device intolerance [Unknown]
  - Micturition urgency [Unknown]
  - Medical device discomfort [Unknown]
  - Vaginal prolapse [Recovered/Resolved]
  - Uterine malposition [Recovered/Resolved]
  - Cervical dilatation [Recovered/Resolved]
  - Urinary retention [Unknown]
  - Enuresis [Unknown]

NARRATIVE: CASE EVENT DATE: 20230309
